FAERS Safety Report 10252343 (Version 2)
Quarter: 2014Q3

REPORT INFORMATION
  Report Type: Spontaneous
  Country: US (occurrence: US)
  Receive Date: 20140623
  Receipt Date: 20140702
  Transmission Date: 20150326
  Serious: No
  Sender: FDA-Public Use
  Company Number: US-TEVA-489922USA

PATIENT
  Age: 20 Year
  Sex: Female
  Weight: 50.85 kg

DRUGS (1)
  1. PARAGARD T380A [Suspect]
     Active Substance: COPPER
     Indication: CONTRACEPTION
     Route: 015
     Dates: start: 201404, end: 20140627

REACTIONS (7)
  - Dyspareunia [Not Recovered/Not Resolved]
  - Bacterial infection [Not Recovered/Not Resolved]
  - Vaginal discharge [Unknown]
  - Menorrhagia [Not Recovered/Not Resolved]
  - Vulvovaginal burning sensation [Unknown]
  - Device expulsion [Recovered/Resolved]
  - Headache [Recovered/Resolved]

NARRATIVE: CASE EVENT DATE: 201405
